FAERS Safety Report 7006113-2 (Version None)
Quarter: 2010Q3

REPORT INFORMATION
  Report Type: 
  Country: None (occurrence: None)
  Receive Date: 20100921
  Receipt Date: 20100910
  Transmission Date: 20110219
  Serious: Yes (Disabling)
  Sender: FDA-Public Use
  Company Number: US-PFIZER INC-2010115263

PATIENT
  Age: 89 Year
  Sex: Female

DRUGS (2)
  1. SPIRONOLACTONE [Suspect]
     Indication: FLUID RETENTION
     Dosage: UNK
     Dates: start: 20100601
  2. FUROSEMIDE [Suspect]
     Indication: DIURETIC THERAPY
     Dosage: UNK

REACTIONS (3)
  - DECREASED ACTIVITY [None]
  - DISCOMFORT [None]
  - OEDEMA [None]
